FAERS Safety Report 12201766 (Version 2)
Quarter: 2016Q3

REPORT INFORMATION
  Report Type: Report from Study
  Country: CA (occurrence: CA)
  Receive Date: 20160322
  Receipt Date: 20160911
  Transmission Date: 20161109
  Serious: Yes (Hospitalization, Other)
  Sender: FDA-Public Use
  Company Number: CA-AMGEN-CANNI2016033707

PATIENT
  Age: 53 Year
  Sex: Male

DRUGS (4)
  1. DEXAMETHASONE. [Suspect]
     Active Substance: DEXAMETHASONE
     Indication: PRODUCT USED FOR UNKNOWN INDICATION
     Dosage: 40 MG, QWK
     Route: 048
     Dates: start: 20141023, end: 20160128
  2. POMALIDOMIDE [Suspect]
     Active Substance: POMALIDOMIDE
     Indication: PRODUCT USED FOR UNKNOWN INDICATION
     Dosage: 4 MG, QWK
     Route: 048
     Dates: start: 20150317, end: 20160128
  3. DALTEPARIN [Concomitant]
     Active Substance: DALTEPARIN
     Dosage: 12000 UNIT, QD
     Route: 058
     Dates: start: 20150325, end: 20150703
  4. CARFILZOMIB [Suspect]
     Active Substance: CARFILZOMIB
     Indication: PLASMA CELL MYELOMA
     Dosage: 56 UNK, DAYS 1, 2, 3, 9, 15 AND 16
     Route: 042
     Dates: start: 20150915, end: 20160119

REACTIONS (4)
  - Malignant pleural effusion [Not Recovered/Not Resolved]
  - Deep vein thrombosis [Recovering/Resolving]
  - Dyspnoea [Unknown]
  - Compartment syndrome [Unknown]

NARRATIVE: CASE EVENT DATE: 20160201
